FAERS Safety Report 6231721-6 (Version None)
Quarter: 2009Q2

REPORT INFORMATION
  Report Type: 
  Country: None (occurrence: None)
  Receive Date: 20090616
  Receipt Date: 20090604
  Transmission Date: 20091009
  Serious: Yes (Other)
  Sender: FDA-Public Use
  Company Number: JP-PFIZER INC-2009224191

PATIENT
  Age: 74 Year

DRUGS (8)
  1. SOLANAX [Suspect]
     Dosage: 1.2 MG, UNK
     Route: 048
     Dates: start: 20020101
  2. AMOBAN [Concomitant]
     Route: 048
  3. EURODIN [Concomitant]
     Route: 048
  4. MYSLEE [Concomitant]
     Route: 048
  5. ROHYPNOL [Concomitant]
     Route: 048
  6. FERROMIA [Concomitant]
     Dosage: UNK
     Route: 048
  7. ADONA [Concomitant]
     Dosage: UNK
  8. TRANSAMIN [Concomitant]
     Dosage: UNK

REACTIONS (1)
  - LEUKOPENIA [None]
